FAERS Safety Report 17661751 (Version 1)
Quarter: 2020Q2

REPORT INFORMATION
  Report Type: Spontaneous
  Country: ES (occurrence: ES)
  Receive Date: 20200413
  Receipt Date: 20200413
  Transmission Date: 20200713
  Serious: Yes (Other)
  Sender: FDA-Public Use
  Company Number: ES-PFIZER INC-2020148980

PATIENT
  Age: 3 Year
  Sex: Female
  Weight: 14.65 kg

DRUGS (5)
  1. ONCASPAR [Suspect]
     Active Substance: PEGASPARGASE
     Indication: ACUTE LYMPHOCYTIC LEUKAEMIA
     Dosage: 1000 U/M2 ON DAY 7
     Route: 030
     Dates: start: 20190829, end: 20190829
  2. VINCRISTINA PFIZER [Suspect]
     Active Substance: VINCRISTINE
     Indication: ACUTE LYMPHOCYTIC LEUKAEMIA
     Dosage: 1.5 MG/M2, CYCLIC ON DAYS 1 AND 6.
     Route: 042
     Dates: start: 20190823, end: 20190828
  3. CICLOFOSFAMIDA [Suspect]
     Active Substance: CYCLOPHOSPHAMIDE
     Indication: ACUTE LYMPHOCYTIC LEUKAEMIA
     Dosage: 200 MG/M2, 1X/DAY ON DAYS 2,3 AND 4
     Route: 042
     Dates: start: 20190824, end: 20190826
  4. CITARABINA [Suspect]
     Active Substance: CYTARABINE
     Indication: ACUTE LYMPHOCYTIC LEUKAEMIA
     Dosage: (2 G/M2) ON DAY 5
     Route: 042
     Dates: start: 20190827, end: 20190827
  5. METHOTREXATE (METHOTREXATE SODIUM) [Suspect]
     Active Substance: METHOTREXATE SODIUM
     Indication: ACUTE LYMPHOCYTIC LEUKAEMIA
     Dosage: 5 G/M2 ON DAY 1
     Route: 042
     Dates: start: 20190823, end: 20190823

REACTIONS (1)
  - Hepatotoxicity [Recovered/Resolved]

NARRATIVE: CASE EVENT DATE: 20190829
